FAERS Safety Report 7198673-6 (Version None)
Quarter: 2010Q4

REPORT INFORMATION
  Report Type: 
  Country: None (occurrence: None)
  Receive Date: 20101227
  Receipt Date: 20101216
  Transmission Date: 20110411
  Serious: Yes (Life-Threatening, Hospitalization)
  Sender: FDA-Public Use
  Company Number: JP-JNJFOC-20101204826

PATIENT
  Sex: Female

DRUGS (12)
  1. CRAVIT [Suspect]
     Indication: PNEUMONIA
     Route: 065
  2. CRAVIT [Suspect]
     Dosage: GIVEN FOR 8 DAYS
     Route: 065
  3. CRAVIT [Suspect]
     Indication: URINARY TRACT INFECTION
     Route: 065
  4. CRAVIT [Suspect]
     Dosage: GIVEN FOR 8 DAYS
     Route: 065
  5. CRAVIT [Suspect]
     Indication: C-REACTIVE PROTEIN INCREASED
     Route: 065
  6. CRAVIT [Suspect]
     Dosage: GIVEN FOR 8 DAYS
     Route: 065
  7. CRAVIT [Suspect]
     Indication: PYREXIA
     Route: 065
  8. CRAVIT [Suspect]
     Dosage: GIVEN FOR 8 DAYS
     Route: 065
  9. MAGMITT [Interacting]
     Indication: CONSTIPATION
     Route: 065
  10. FAMOTIDINE [Interacting]
     Indication: GASTRITIS
     Route: 065
  11. TIAPRIDE HYDROCHLORIDE [Interacting]
     Indication: DELIRIUM
     Route: 065
  12. CONTOMIN [Interacting]
     Indication: DELIRIUM
     Route: 065

REACTIONS (2)
  - DRUG INTERACTION [None]
  - LIVER DISORDER [None]
